FAERS Safety Report 6157508-0 (Version None)
Quarter: 2009Q2

REPORT INFORMATION
  Report Type: 
  Country: None (occurrence: None)
  Receive Date: 20090416
  Receipt Date: 20090406
  Transmission Date: 20091009
  Serious: Yes (Life-Threatening, Hospitalization, Other)
  Sender: FDA-Public Use
  Company Number: JP-PFIZER INC-2009179051

PATIENT

DRUGS (1)
  1. AMLODIPINE BESYLATE [Suspect]
     Dosage: UNK
     Route: 048

REACTIONS (2)
  - CARDIAC ARREST [None]
  - FEELING ABNORMAL [None]
